FAERS Safety Report 8426756-9 (Version None)
Quarter: 2012Q2

REPORT INFORMATION
  Report Type: 
  Country: None (occurrence: None)
  Receive Date: 20120531
  Receipt Date: 20120516
  Transmission Date: 20120825
  Serious: Yes (Hospitalization)
  Sender: FDA-Public Use
  Company Number: DSA_57108_2012

PATIENT
  Sex: Male
  Weight: 97.5234 kg

DRUGS (6)
  1. DILTIAZEM HCL [Suspect]
     Indication: ATRIAL FIBRILLATION
     Dosage: (120 MG, DAILY ORAL), (240 MG, DAILY ORAL)
     Route: 048
     Dates: start: 20110901
  2. RAMIPRIL [Concomitant]
  3. SIMVASTATIN [Concomitant]
  4. APLENZIN [Suspect]
     Indication: DEPRESSION
     Dosage: (522 MG QD)
     Dates: start: 20091201
  5. ZOLPIDEM [Concomitant]
  6. ATORVASTATIN CALCIUM [Concomitant]

REACTIONS (1)
  - ATRIAL FIBRILLATION [None]
